FAERS Safety Report 23272762 (Version 1)
Quarter: 2023Q4

REPORT INFORMATION
  Report Type: Spontaneous
  Country: US (occurrence: None)
  Receive Date: 20231206
  Receipt Date: 20231206
  Transmission Date: 20240109
  Serious: Yes (Other)
  Sender: FDA-Public Use
  Company Number: None

PATIENT
  Age: 73 Year
  Sex: Female

DRUGS (1)
  1. CEFDINIR [Suspect]
     Active Substance: CEFDINIR
     Indication: Subcutaneous abscess
     Dosage: FREQUENCY : TWICE A DAY;?
     Route: 048
     Dates: start: 20231202, end: 20231205

REACTIONS (7)
  - Headache [None]
  - Pruritus [None]
  - Throat tightness [None]
  - Abdominal discomfort [None]
  - Rash [None]
  - Dizziness [None]
  - Dyspnoea [None]

NARRATIVE: CASE EVENT DATE: 20231202
